FAERS Safety Report 24560739 (Version 1)
Quarter: 2024Q4

REPORT INFORMATION
  Report Type: Spontaneous
  Country: US (occurrence: None)
  Receive Date: 20241028
  Receipt Date: 20241028
  Transmission Date: 20250114
  Serious: No
  Sender: Public
  Company Number: None

PATIENT
  Age: 77 Year
  Sex: Male

DRUGS (2)
  1. NIRMATRELVIR [Suspect]
     Active Substance: NIRMATRELVIR
     Indication: COVID-19
     Route: 048
     Dates: start: 20240729, end: 20240730
  2. UNSPECIFIED INGREDIENT [Suspect]
     Active Substance: UNSPECIFIED INGREDIENT

REACTIONS (4)
  - Diarrhoea [None]
  - Confusional state [None]
  - Throat tightness [None]
  - Refusal of treatment by patient [None]

NARRATIVE: CASE EVENT DATE: 20240731
